FAERS Safety Report 9207610 (Version 1)
Quarter: 2013Q2

REPORT INFORMATION
  Report Type: Spontaneous
  Country: US (occurrence: None)
  Receive Date: 20130402
  Receipt Date: 20130402
  Transmission Date: 20140414
  Serious: Yes (Disabling, Other)
  Sender: FDA-Public Use
  Company Number: None

PATIENT
  Age: 26 Year
  Sex: Male
  Weight: 87.09 kg

DRUGS (1)
  1. LEVOFLOXACIN [Suspect]
     Indication: PROSTATITIS
     Dates: start: 20120821, end: 20120826

REACTIONS (10)
  - Insomnia [None]
  - Erectile dysfunction [None]
  - Anxiety [None]
  - Depression [None]
  - Asthenia [None]
  - Pain [None]
  - Hypoaesthesia [None]
  - Paraesthesia [None]
  - Tendonitis [None]
  - Quality of life decreased [None]
